FAERS Safety Report 7161821-8 (Version None)
Quarter: 2010Q4

REPORT INFORMATION
  Report Type: 
  Country: None (occurrence: None)
  Receive Date: 20101215
  Receipt Date: 20101207
  Transmission Date: 20110411
  Serious: Yes (Other)
  Sender: FDA-Public Use
  Company Number: US-AMGEN-USASP2010006566

PATIENT

DRUGS (4)
  1. NEULASTA [Suspect]
     Indication: CHEMOTHERAPY
     Dosage: 6 MG, UNK
  2. CYTOXAN [Concomitant]
  3. TAXOTERE [Concomitant]
  4. DEXAMETHASONE [Concomitant]

REACTIONS (4)
  - HEADACHE [None]
  - RASH [None]
  - THROAT TIGHTNESS [None]
  - URTICARIA [None]
